FAERS Safety Report 4575385-6 (Version None)
Quarter: 2005Q1

REPORT INFORMATION
  Report Type: 
  Country: None (occurrence: None)
  Receive Date: 20050131
  Receipt Date: 20050131
  Transmission Date: 20050727
  Serious: Yes (Other)
  Sender: FDA-Public Use
  Company Number: None

PATIENT
  Age: 51 Year
  Sex: Female
  Weight: 46.2669 kg

DRUGS (7)
  1. DOCETAXEL    80MG/2ML    AVENTIS [Suspect]
     Indication: PANCREATIC CARCINOMA
     Dosage: 65MG/M2    Q21-DAYS   INTRAVENOU
     Route: 042
     Dates: start: 20040223, end: 20040223
  2. IRINOTECAN    100MG/5ML   PHARMACIA + UPJOHN [Suspect]
     Indication: PANCREATIC CARCINOMA
     Dosage: 160MG/M2     Q21-DAYS     INTRAVENOU
     Route: 042
     Dates: start: 20040223, end: 20040223
  3. OXYCONTIN [Concomitant]
  4. ZOFRAN [Concomitant]
  5. ATIVAN [Concomitant]
  6. MARINOL [Concomitant]
  7. DECADRON [Concomitant]

REACTIONS (3)
  - DRUG INEFFECTIVE [None]
  - POST PROCEDURAL NAUSEA [None]
  - POST PROCEDURAL VOMITING [None]
